FAERS Safety Report 6362426-9 (Version None)
Quarter: 2009Q3

REPORT INFORMATION
  Report Type: 
  Country: None (occurrence: None)
  Receive Date: 20090918
  Receipt Date: 20090608
  Transmission Date: 20100115
  Serious: No
  Sender: FDA-Public Use
  Company Number: US-ABBOTT-09P-163-0575853-00

PATIENT
  Sex: Male
  Weight: 59.02 kg

DRUGS (3)
  1. HUMIRA [Suspect]
     Indication: CROHN'S DISEASE
     Route: 058
     Dates: start: 20080101
  2. NEXIUM [Concomitant]
     Indication: CROHN'S DISEASE
  3. LOMOTIL [Concomitant]
     Indication: CROHN'S DISEASE

REACTIONS (1)
  - DRUG DOSE OMISSION [None]
